FAERS Safety Report 15570568 (Version 1)
Quarter: 2018Q4

REPORT INFORMATION
  Report Type: Report from Study
  Country: US (occurrence: US)
  Receive Date: 20181031
  Receipt Date: 20181031
  Transmission Date: 20190205
  Serious: No
  Sender: FDA-Public Use
  Company Number: US-IPSEN BIOPHARMACEUTICALS, INC.-2018-16506

PATIENT
  Age: 7 Year
  Sex: Female

DRUGS (1)
  1. INCRELEX [Suspect]
     Active Substance: MECASERMIN
     Indication: BODY HEIGHT BELOW NORMAL
     Dosage: DOSE NOT REPORTED
     Route: 065

REACTIONS (5)
  - Nausea [Unknown]
  - Vomiting [Unknown]
  - Diarrhoea [Unknown]
  - Off label use [Unknown]
  - Headache [Unknown]
